FAERS Safety Report 9449089 (Version 1)
Quarter: 2013Q3

REPORT INFORMATION
  Report Type: Spontaneous
  Country: DE (occurrence: DE)
  Receive Date: 20130808
  Receipt Date: 20130808
  Transmission Date: 20140515
  Serious: Yes (Hospitalization, Disabling, Congenital Anomaly)
  Sender: FDA-Public Use
  Company Number: DE-MYLANLABS-2013S1016694

PATIENT
  Age: 1 Day
  Sex: Male
  Weight: 3.04 kg

DRUGS (5)
  1. ROXITHROMYCIN [Suspect]
     Dosage: 300 [MG/D ]
     Route: 064
     Dates: start: 20070727, end: 20070802
  2. BUDES [Suspect]
     Dosage: 0.8 [MG/D ]/ 2X 0.4 MG/D
     Route: 064
     Dates: start: 20070727, end: 20070802
  3. ZOLOFT [Suspect]
     Dosage: 50 [MG/D ]/ WK 0-5: 50MG/D, WK 5-10: 25MG/D, DANACH WIEDER 50 MG?
     Route: 064
  4. SALBUTAMOL [Suspect]
     Route: 064
     Dates: start: 20070727, end: 20070802
  5. FOLIO [Concomitant]
     Dosage: 0.4 [MG/D ]
     Route: 064

REACTIONS (8)
  - Macrocephaly [Unknown]
  - Cryptorchism [Recovered/Resolved with Sequelae]
  - Talipes [Unknown]
  - Developmental hip dysplasia [Not Recovered/Not Resolved]
  - Limb hypoplasia congenital [Not Recovered/Not Resolved]
  - Congenital multiplex arthrogryposis [Not Recovered/Not Resolved]
  - Strabismus [Recovered/Resolved with Sequelae]
  - Exposure during pregnancy [Unknown]
